FAERS Safety Report 4526196-9 (Version None)
Quarter: 2004Q4

REPORT INFORMATION
  Report Type: 
  Country: None (occurrence: None)
  Receive Date: 20041210
  Receipt Date: 20041203
  Transmission Date: 20050328
  Serious: Yes (Hospitalization)
  Sender: FDA-Public Use
  Company Number: 2004SE06361

PATIENT
  Age: 70 Year
  Sex: Female
  Weight: 39 kg

DRUGS (6)
  1. BLOPRESS [Suspect]
     Indication: HYPERTENSION
     Dosage: 4 MG QD PO
     Route: 048
     Dates: start: 20041108, end: 20041012
  2. NORVASC [Suspect]
     Indication: HYPERTENSION
     Dosage: 5 MG QD PO
     Route: 048
     Dates: end: 20041012
  3. URSODEOXYCHOLIC ACID [Concomitant]
  4. S.M. POWDER [Concomitant]
  5. NEUROVITAN [Concomitant]
  6. ETIZOLAM [Concomitant]

REACTIONS (15)
  - ABASIA [None]
  - ANTINUCLEAR ANTIBODY POSITIVE [None]
  - ASPIRATION [None]
  - COMPLEMENT FACTOR INCREASED [None]
  - DERMATOMYOSITIS [None]
  - DYSSTASIA [None]
  - HEPATIC FUNCTION ABNORMAL [None]
  - HYPOKALAEMIA [None]
  - MYOGLOBIN URINE PRESENT [None]
  - POLYMYOSITIS [None]
  - PYREXIA [None]
  - QUADRIPLEGIA [None]
  - RENAL IMPAIRMENT [None]
  - RESPIRATORY DISORDER [None]
  - RHABDOMYOLYSIS [None]
